FAERS Safety Report 8692619 (Version 2)
Quarter: 2012Q4

REPORT INFORMATION
  Report Type: 
  Country: FR (occurrence: FR)
  Receive Date: 20120730
  Receipt Date: 20120830
  Transmission Date: 20130627
  Serious: Yes (Death, Congenital Anomaly)
  Sender: FDA-Public Use
  Company Number: FR-GILEAD-2012-0058553

PATIENT
  Sex: Male

DRUGS (3)
  1. TRUVADA [Suspect]
     Indication: HIV INFECTION
     Dosage: UNK
     Route: 064
     Dates: start: 2012
  2. NORVIR [Suspect]
     Indication: HIV INFECTION
     Dosage: UNK
     Route: 064
     Dates: start: 2012
  3. REYATAZ [Suspect]
     Indication: HIV INFECTION
     Dosage: UNK
     Route: 064
     Dates: start: 2012

REACTIONS (8)
  - Eagle Barrett syndrome [Fatal]
  - Bladder dilatation [Fatal]
  - Amniotic fluid volume decreased [Fatal]
  - Rectal perforation [Fatal]
  - Renal aplasia [Fatal]
  - Dysmorphism [Fatal]
  - Intestinal malrotation [Fatal]
  - Persistent cloaca [Fatal]
